FAERS Safety Report 24971159 (Version 2)
Quarter: 2025Q1

REPORT INFORMATION
  Report Type: Spontaneous
  Country: US (occurrence: None)
  Receive Date: 20250214
  Receipt Date: 20250306
  Transmission Date: 20250408
  Serious: No
  Sender: INCYTE
  Company Number: US-INCYTE CORPORATION-2025IN001207

PATIENT
  Age: 87 Year
  Weight: 68.03 kg

DRUGS (5)
  1. JAKAFI [Suspect]
     Active Substance: RUXOLITINIB
     Indication: Acute myeloid leukaemia
  2. JAKAFI [Suspect]
     Active Substance: RUXOLITINIB
     Dosage: 5 MILLIGRAM, BID
  3. JAKAFI [Suspect]
     Active Substance: RUXOLITINIB
     Dosage: 5 MILLIGRAM, BID
  4. TIBSOVO [Suspect]
     Active Substance: IVOSIDENIB
     Indication: Product used for unknown indication
     Route: 065
  5. TIBSOVO [Suspect]
     Active Substance: IVOSIDENIB
     Route: 065

REACTIONS (6)
  - Fatigue [Recovering/Resolving]
  - Blood test abnormal [Recovering/Resolving]
  - Drug intolerance [Recovering/Resolving]
  - Hypoacusis [Unknown]
  - Malaise [Unknown]
  - Off label use [Unknown]
